FAERS Safety Report 8410207-4 (Version None)
Quarter: 2012Q2

REPORT INFORMATION
  Report Type: 
  Country: None (occurrence: None)
  Receive Date: 20120605
  Receipt Date: 20120530
  Transmission Date: 20120825
  Serious: Yes (Other)
  Sender: FDA-Public Use
  Company Number: PHHY2009JP59351

PATIENT
  Sex: Female

DRUGS (12)
  1. EXJADE [Suspect]
     Dosage: 1000 MG,DAILY
     Route: 048
     Dates: start: 20090219, end: 20090617
  2. EXJADE [Suspect]
     Dosage: 1250 MG, DAILY
     Route: 048
     Dates: start: 20090618, end: 20090715
  3. EXJADE [Suspect]
     Indication: THALASSAEMIA BETA
     Dosage: 500 MG,DAILY
     Route: 048
     Dates: start: 20080806, end: 20081014
  4. EXJADE [Suspect]
     Dosage: 500 MG, DAILY
     Route: 048
     Dates: start: 20081105, end: 20081216
  5. EXJADE [Suspect]
     Dosage: 1000 MG, DAILY
     Route: 048
     Dates: start: 20081217, end: 20090106
  6. EXJADE [Suspect]
     Dosage: 500 MG, DAILY
     Route: 048
     Dates: start: 20090107, end: 20090218
  7. DESFERAL [Concomitant]
     Indication: IRON OVERLOAD
     Dosage: 71 MG, UNK
     Route: 030
     Dates: start: 20070228, end: 20070716
  8. EXJADE [Suspect]
     Indication: IRON OVERLOAD
     Dosage: 1000 MG, DAILY
     Route: 048
     Dates: start: 20081015, end: 20081104
  9. ALLOPURINOL [Suspect]
     Dosage: 100 MG, DAILY
     Route: 048
     Dates: start: 20080806, end: 20080915
  10. EXJADE [Suspect]
     Dosage: 1000 MG, DAILY
     Route: 048
     Dates: start: 20090716, end: 20090805
  11. ALLOPURINOL [Suspect]
     Dosage: 200 MG,DAILY
     Route: 048
     Dates: start: 20080916
  12. EXJADE [Suspect]
     Dosage: 1250 MG, DAILY
     Route: 048
     Dates: start: 20090806, end: 20090806

REACTIONS (1)
  - HEPATIC FUNCTION ABNORMAL [None]
